FAERS Safety Report 22860501 (Version 6)
Quarter: 2024Q2

REPORT INFORMATION
  Report Type: Spontaneous
  Country: US (occurrence: US)
  Receive Date: 20230824
  Receipt Date: 20240430
  Transmission Date: 20240716
  Serious: Yes (Other)
  Sender: FDA-Public Use
  Company Number: US-PFIZER INC-PV202300144825

PATIENT
  Age: 57 Year
  Sex: Female

DRUGS (2)
  1. IBRANCE [Suspect]
     Active Substance: PALBOCICLIB
     Indication: Breast cancer metastatic
     Dosage: 125 MG, CYCLIC (ONCE DAILY WITH OR WITHOUT FOOD ON DAYS 1-21 EVERY 28)
     Route: 048
     Dates: start: 202108, end: 2024
  2. LETROZOLE [Suspect]
     Active Substance: LETROZOLE
     Indication: Breast cancer metastatic
     Dosage: 2.5 MG
     Route: 048
     Dates: start: 202108

REACTIONS (33)
  - Tooth fracture [Not Recovered/Not Resolved]
  - Weight decreased [Recovering/Resolving]
  - Skin graft [Recovering/Resolving]
  - Lung abscess [Recovering/Resolving]
  - Swelling [Recovering/Resolving]
  - Pneumonia [Recovering/Resolving]
  - Product prescribing error [Unknown]
  - Nausea [Unknown]
  - Vomiting [Unknown]
  - Alopecia [Recovering/Resolving]
  - Bone disorder [Not Recovered/Not Resolved]
  - Axillary pain [Recovering/Resolving]
  - Skin discolouration [Recovering/Resolving]
  - Trichorrhexis [Recovering/Resolving]
  - Hair disorder [Recovering/Resolving]
  - Joint range of motion decreased [Recovering/Resolving]
  - Wound [Recovering/Resolving]
  - Bone pain [Recovering/Resolving]
  - Pain [Recovering/Resolving]
  - Micturition urgency [Recovering/Resolving]
  - Incontinence [Recovering/Resolving]
  - Haemorrhage [Recovering/Resolving]
  - Dry skin [Recovering/Resolving]
  - Infection [Recovering/Resolving]
  - Asthenia [Recovering/Resolving]
  - Accident [Recovering/Resolving]
  - Feeling abnormal [Recovering/Resolving]
  - Anxiety [Recovering/Resolving]
  - Nervousness [Recovering/Resolving]
  - Feeling hot [Unknown]
  - Hot flush [Unknown]
  - Pyrexia [Unknown]
  - Neoplasm progression [Recovering/Resolving]
